FAERS Safety Report 9807017 (Version 1)
Quarter: 2014Q1

REPORT INFORMATION
  Report Type: Report from Study
  Country: US (occurrence: US)
  Receive Date: 20140110
  Receipt Date: 20140110
  Transmission Date: 20141002
  Serious: Yes (Other)
  Sender: FDA-Public Use
  Company Number: US-ROCHE-1329303

PATIENT
  Sex: Male

DRUGS (3)
  1. NUTROPIN [Suspect]
     Indication: GROWTH HORMONE DEFICIENCY
     Dosage: UNKNOWN
     Route: 058
     Dates: end: 201306
  2. CARNITOR [Concomitant]
  3. PREVACID [Concomitant]
     Route: 065

REACTIONS (11)
  - Developmental delay [Unknown]
  - Weight gain poor [Unknown]
  - Dyspepsia [Unknown]
  - Muscular weakness [Unknown]
  - Headache [Unknown]
  - Vomiting [Unknown]
  - Decreased appetite [Unknown]
  - Arthropathy [Unknown]
  - Speech disorder [Unknown]
  - Ataxia [Unknown]
  - Anxiety [Unknown]
